FAERS Safety Report 15290404 (Version 1)
Quarter: 2018Q3

REPORT INFORMATION
  Report Type: Spontaneous
  Country: US (occurrence: US)
  Receive Date: 20180817
  Receipt Date: 20180817
  Transmission Date: 20181010
  Serious: Yes (Hospitalization, Other)
  Sender: FDA-Public Use
  Company Number: US-ALLERGAN-1840118US

PATIENT
  Age: 23 Year
  Sex: Female

DRUGS (2)
  1. URSODEOXYCHOLIC ACID UNK [Suspect]
     Active Substance: URSODIOL
     Indication: CHOLANGITIS SCLEROSING
     Dosage: 900 MG A DAY
     Route: 065
  2. URSODEOXYCHOLIC ACID UNK [Suspect]
     Active Substance: URSODIOL
     Dosage: 1500 MG A DAY
     Route: 065

REACTIONS (4)
  - Exposure during pregnancy [Unknown]
  - Premature baby [Unknown]
  - Varices oesophageal [Unknown]
  - Premature rupture of membranes [Unknown]
